FAERS Safety Report 13919426 (Version 1)
Quarter: 2017Q3

REPORT INFORMATION
  Report Type: Spontaneous
  Country: US (occurrence: None)
  Receive Date: 20170828
  Receipt Date: 20170828
  Transmission Date: 20171127
  Serious: No
  Sender: FDA-Public Use
  Company Number: None

PATIENT
  Age: 60 Year
  Sex: Female
  Weight: 66.8 kg

DRUGS (1)
  1. LOSARTAN. [Suspect]
     Active Substance: LOSARTAN

REACTIONS (4)
  - Swollen tongue [None]
  - Peripheral swelling [None]
  - Angioedema [None]
  - Dysarthria [None]

NARRATIVE: CASE EVENT DATE: 20170615
